FAERS Safety Report 8532677-3 (Version None)
Quarter: 2012Q2

REPORT INFORMATION
  Report Type: 
  Country: None (occurrence: None)
  Receive Date: 20120412
  Receipt Date: 20090916
  Transmission Date: 20120825
  Serious: Yes (Other)
  Sender: FDA-Public Use
  Company Number: PHEH2009US11071

PATIENT
  Age: 31 Year
  Sex: Female

DRUGS (1)
  1. CLOZAPINE [Suspect]
     Indication: SCHIZOPHRENIA
     Dosage: 100 MG, ORAL 50MG, UNK
     Route: 048
     Dates: start: 20070101

REACTIONS (2)
  - MENTAL IMPAIRMENT [None]
  - ELECTROCARDIOGRAM ABNORMAL [None]
